FAERS Safety Report 8265790 (Version 2)
Quarter: 2014Q1

REPORT INFORMATION
  Report Type: Spontaneous
  Country: US (occurrence: US)
  Receive Date: 20111129
  Receipt Date: 20140213
  Transmission Date: 20141002
  Serious: Yes (Hospitalization)
  Sender: FDA-Public Use
  Company Number: US-BIOGENIDEC-2011BI044489

PATIENT
  Age: 64 Year
  Sex: Male

DRUGS (1)
  1. AVONEX [Suspect]
     Indication: MULTIPLE SCLEROSIS
     Route: 030
     Dates: start: 19990301

REACTIONS (8)
  - Fall [Recovered/Resolved]
  - Spinal fracture [Recovered/Resolved]
  - Abasia [Not Recovered/Not Resolved]
  - Thrombosis [Unknown]
  - Diabetes mellitus [Unknown]
  - Constipation [Unknown]
  - Pneumonia [Recovered/Resolved]
  - Parkinson^s disease [Not Recovered/Not Resolved]
